FAERS Safety Report 7235568-3 (Version None)
Quarter: 2011Q1

REPORT INFORMATION
  Report Type: 
  Country: None (occurrence: None)
  Receive Date: 20110120
  Receipt Date: 20110113
  Transmission Date: 20110831
  Serious: Yes (Death)
  Sender: FDA-Public Use
  Company Number: PHHY2011MY03363

PATIENT
  Age: 18 Year
  Sex: Male

DRUGS (6)
  1. CYCLOPHOSPHAMIDE [Concomitant]
     Dosage: 60 MG/KG
  2. MERCAPTOPURINE [Concomitant]
     Route: 048
  3. HYPER-CVAD [Concomitant]
  4. METHOTREXAT [Concomitant]
  5. PREDNISOLONE [Concomitant]
  6. SANDIMMUNE [Suspect]
     Indication: PROPHYLAXIS AGAINST GRAFT VERSUS HOST DISEASE

REACTIONS (3)
  - LOCAL SWELLING [None]
  - ACUTE LYMPHOCYTIC LEUKAEMIA RECURRENT [None]
  - NEPHROPATHY TOXIC [None]
